FAERS Safety Report 8477194-4 (Version None)
Quarter: 2012Q2

REPORT INFORMATION
  Report Type: 
  Country: None (occurrence: None)
  Receive Date: 20120619
  Receipt Date: 20120605
  Transmission Date: 20120825
  Serious: Yes (Other)
  Sender: FDA-Public Use
  Company Number: ACO_28117_2011

PATIENT
  Age: 46 Year
  Sex: Female
  Weight: 87.5 kg

DRUGS (9)
  1. CALCIUM CARBONATE [Concomitant]
  2. LIPITOR [Concomitant]
  3. LOVAZA [Concomitant]
  4. COPAXONE [Concomitant]
  5. PROPRANOLOL /00030001/ (PROPRANOLOL) [Concomitant]
  6. AMPYRA [Suspect]
     Indication: GAIT DISTURBANCE
     Dosage: 10 MG, BID, ORAL; 10 MG, QD, ORAL
     Dates: end: 20100501
  7. AMPYRA [Suspect]
     Indication: GAIT DISTURBANCE
     Dosage: 10 MG, BID, ORAL; 10 MG, QD, ORAL
     Dates: end: 20100101
  8. LEXAPRO [Concomitant]
  9. ERGOCALCIFEROL [Concomitant]

REACTIONS (5)
  - INSOMNIA [None]
  - NEPHROLITHIASIS [None]
  - FOOT FRACTURE [None]
  - INAPPROPRIATE SCHEDULE OF DRUG ADMINISTRATION [None]
  - THERAPY CESSATION [None]
